FAERS Safety Report 16412766 (Version 1)
Quarter: 2019Q2

REPORT INFORMATION
  Report Type: Spontaneous
  Country: JO (occurrence: JO)
  Receive Date: 20190611
  Receipt Date: 20190611
  Transmission Date: 20190711
  Serious: Yes (Other)
  Sender: FDA-Public Use
  Company Number: JO-EDENBRIDGE PHARMACEUTICALS, LLC-JO-2019EDE000053

PATIENT
  Age: 17 Year
  Sex: Female

DRUGS (2)
  1. PREDNISOLONE SODIUM PHOSPHATE. [Suspect]
     Active Substance: PREDNISOLONE SODIUM PHOSPHATE
     Indication: MIXED CONNECTIVE TISSUE DISEASE
     Dosage: 16 MG, BID
     Route: 048
     Dates: start: 2013
  2. PREDNISOLONE SODIUM PHOSPHATE. [Suspect]
     Active Substance: PREDNISOLONE SODIUM PHOSPHATE
     Dosage: 10 MG, QD
     Route: 048

REACTIONS (1)
  - Breast enlargement [Recovered/Resolved]

NARRATIVE: CASE EVENT DATE: 2013
